FAERS Safety Report 9860862 (Version 1)
Quarter: 2014Q1

REPORT INFORMATION
  Report Type: Spontaneous
  Country: US (occurrence: US)
  Receive Date: 20140202
  Receipt Date: 20140202
  Transmission Date: 20141002
  Serious: No
  Sender: FDA-Public Use
  Company Number: US-ALLERGAN-1301676US

PATIENT
  Age: 47 Year
  Sex: Female

DRUGS (2)
  1. BOTOX COSMETIC [Suspect]
     Indication: SKIN WRINKLING
     Dosage: 15 UNITS, SINGLE
     Route: 030
  2. BOTOX COSMETIC [Suspect]
     Indication: SKIN WRINKLING
     Dosage: 20 UNITS, SINGLE
     Route: 030

REACTIONS (5)
  - Skin irritation [Not Recovered/Not Resolved]
  - Injection site pruritus [Recovered/Resolved]
  - Eyelid oedema [Not Recovered/Not Resolved]
  - Injection site erythema [Recovered/Resolved]
  - Erythema [Not Recovered/Not Resolved]
